FAERS Safety Report 6393451-X (Version None)
Quarter: 2009Q4

REPORT INFORMATION
  Report Type: 
  Country: None (occurrence: None)
  Receive Date: 20091008
  Receipt Date: 20090924
  Transmission Date: 20100525
  Serious: Yes (Hospitalization, Other)
  Sender: FDA-Public Use
  Company Number: US-PFIZER INC-2009271058

PATIENT
  Sex: Female
  Weight: 89 kg

DRUGS (5)
  1. SOLU-MEDROL [Suspect]
     Indication: MULTIPLE SCLEROSIS RELAPSE
     Dosage: UNK
     Route: 042
     Dates: start: 20080401, end: 20090101
  2. PREDNISONE [Suspect]
     Indication: MULTIPLE SCLEROSIS RELAPSE
     Dosage: UNK
     Dates: start: 20080401, end: 20090101
  3. INTERFERON BETA-1A [Suspect]
     Indication: MULTIPLE SCLEROSIS
     Dosage: 44 MCG 3 IN 1 WEEK
     Route: 058
     Dates: start: 20070101, end: 20090208
  4. ZYRTEC [Concomitant]
     Indication: HYPERSENSITIVITY
     Dosage: UNK
  5. LEXAPRO [Concomitant]
     Indication: DEPRESSION
     Dosage: UNK
     Dates: start: 20070101

REACTIONS (5)
  - ANAEMIA [None]
  - ANASTOMOTIC COMPLICATION [None]
  - GASTROINTESTINAL HAEMORRHAGE [None]
  - MULTIPLE SCLEROSIS RELAPSE [None]
  - OESOPHAGEAL DISORDER [None]
